FAERS Safety Report 22358189 (Version 1)
Quarter: 2023Q2

REPORT INFORMATION
  Report Type: Spontaneous
  Country: JP (occurrence: JP)
  Receive Date: 20230524
  Receipt Date: 20230524
  Transmission Date: 20230722
  Serious: Yes (Other)
  Sender: FDA-Public Use
  Company Number: JP-TAKEDA-2023TJP005687

PATIENT
  Age: 8 Decade
  Sex: Male

DRUGS (5)
  1. CABOMETYX [Suspect]
     Active Substance: CABOZANTINIB S-MALATE
     Indication: Hepatocellular carcinoma
     Dosage: 20 MG
     Route: 048
     Dates: start: 20230125
  2. CABOMETYX [Suspect]
     Active Substance: CABOZANTINIB S-MALATE
     Dosage: 40 MG
     Route: 048
  3. CABOMETYX [Suspect]
     Active Substance: CABOZANTINIB S-MALATE
     Dosage: 20 MG
     Route: 048
     Dates: end: 20230301
  4. UREA [Concomitant]
     Active Substance: UREA
     Indication: Prophylaxis
     Dosage: UNK
     Route: 003
  5. HEPARINOID [Concomitant]
     Indication: Prophylaxis
     Dosage: UNK
     Route: 003

REACTIONS (2)
  - Blood pressure increased [Recovering/Resolving]
  - Oedema [Recovering/Resolving]
